FAERS Safety Report 5633945-5 (Version None)
Quarter: 2008Q1

REPORT INFORMATION
  Report Type: 
  Country: None (occurrence: None)
  Receive Date: 20080215
  Receipt Date: 20080206
  Transmission Date: 20080703
  Serious: Yes (Death, Life-Threatening, Hospitalization, Disabling)
  Sender: FDA-Public Use
  Company Number: 2007SP024402

PATIENT
  Age: 61 Year
  Sex: Female
  Weight: 61.4 kg

DRUGS (4)
  1. TEMODAL [Suspect]
     Indication: GLIOBLASTOMA
     Dosage: 120 MG; QD;
     Dates: start: 20071016, end: 20071106
  2. DEXAMETHASONE TAB [Concomitant]
  3. ONDANSETRON [Concomitant]
  4. COTRIMOXAZOLE [Concomitant]

REACTIONS (7)
  - ANOREXIA [None]
  - BONE MARROW FAILURE [None]
  - LOSS OF CONSCIOUSNESS [None]
  - MUCOSAL INFLAMMATION [None]
  - NEUROLOGICAL SYMPTOM [None]
  - SEPSIS [None]
  - THROMBOCYTOPENIA [None]
